FAERS Safety Report 12410135 (Version 1)
Quarter: 2016Q2

REPORT INFORMATION
  Report Type: Spontaneous
  Country: US (occurrence: US)
  Receive Date: 20160527
  Receipt Date: 20160527
  Transmission Date: 20160815
  Serious: Yes (Other)
  Sender: FDA-Public Use
  Company Number: US-BRISTOL-MYERS SQUIBB COMPANY-BMS-2016-039153

PATIENT
  Age: 44 Year
  Sex: Male

DRUGS (1)
  1. IPILIMUMAB [Suspect]
     Active Substance: IPILIMUMAB
     Indication: METASTATIC MALIGNANT MELANOMA
     Route: 065

REACTIONS (5)
  - Pyrexia [Unknown]
  - Diarrhoea [Unknown]
  - Optic neuritis [Recovering/Resolving]
  - Rectal abscess [Unknown]
  - Iridocyclitis [Recovered/Resolved]
